FAERS Safety Report 25370717 (Version 1)
Quarter: 2025Q2

REPORT INFORMATION
  Report Type: Spontaneous
  Country: AU (occurrence: AU)
  Receive Date: 20250528
  Receipt Date: 20250528
  Transmission Date: 20250717
  Serious: Yes (Hospitalization)
  Sender: PFIZER
  Company Number: AU-PFIZER INC-202500037085

PATIENT
  Age: 70 Year
  Sex: Female

DRUGS (19)
  1. PAXLOVID [Suspect]
     Active Substance: NIRMATRELVIR\RITONAVIR
     Indication: COVID-19 treatment
     Dosage: UNK UNK, 2X/DAY
     Route: 048
     Dates: start: 20250204, end: 20250209
  2. PALEXIA [Concomitant]
     Active Substance: TAPENTADOL HYDROCHLORIDE
     Indication: Pain
  3. SPIRIVA RESPIMAT [Concomitant]
     Active Substance: TIOTROPIUM BROMIDE
     Indication: Obstructive airways disorder
     Dosage: 2.5 UG, 1X/DAY (2 PUFFS EACH MORNING)
  4. VENTOLIN [Concomitant]
     Active Substance: ALBUTEROL SULFATE
     Indication: Obstructive airways disorder
  5. AZITHROMYCIN [Concomitant]
     Active Substance: AZITHROMYCIN
     Dates: start: 20171103
  6. CLONIDINE [Concomitant]
     Active Substance: CLONIDINE
     Dosage: 200 UG, 2X/DAY (2 DF BEFORE BED)
     Dates: start: 20240522
  7. CLOPIDOGREL [Concomitant]
     Active Substance: CLOPIDOGREL BISULFATE
     Dosage: 75 MG, 1X/DAY, (1 DF IN THE MORNING)
     Dates: start: 20250110
  8. DITROPAN [Concomitant]
     Active Substance: OXYBUTYNIN CHLORIDE
     Dosage: 5 MG, 1X/DAY, (1 DF AT NIGHT)
     Dates: start: 20221208
  9. VITAMIN D NOS [Concomitant]
     Active Substance: CHOLECALCIFEROL\ERGOCALCIFEROL
     Dosage: 1000 IU, DAILY
     Dates: start: 20200302
  10. ODAPLIX SR [Concomitant]
     Dosage: 1.5 MG, 1X/DAY, (1DF IN THE MORNING)
     Dates: start: 20200901
  11. PANTOPRAZOLE [Concomitant]
     Active Substance: PANTOPRAZOLE
     Dosage: 20 MG, 1X/DAY (1 DF IN THE MORNING)
     Dates: start: 20230315
  12. PERINDOPRIL [Concomitant]
     Active Substance: PERINDOPRIL
     Dosage: 10 MG, 1X/DAY, (1 DF IN THE MORNING)
     Dates: start: 20250110
  13. HERBALS\TURMERIC [Concomitant]
     Active Substance: HERBALS\TURMERIC
     Dosage: 3100 MG, 1X/DAY (1 DF IN THE MORNING)
     Dates: start: 20240312
  14. CHESTY COUGH BROMHEXINE [Concomitant]
     Dosage: 8 MG, 2X/DAY
     Dates: start: 20171103
  15. TERRYWHITE CHEMMART PARA OSTEO [Concomitant]
     Dates: start: 20171103
  16. SYMBICORT [Concomitant]
     Active Substance: BUDESONIDE\FORMOTEROL FUMARATE DIHYDRATE
  17. RILAST [BUDESONIDE;FORMOTEROL FUMARATE] [Concomitant]
     Indication: Obstructive airways disorder
     Dosage: 2 DF, 1X/DAY (EACH MORNING)
  18. ATORVASTATIN [Concomitant]
     Active Substance: ATORVASTATIN
     Dosage: 1 DF, DAILY (ONE AT NIGHT)
     Dates: start: 20170322, end: 202502
  19. PALEXIA [Concomitant]
     Active Substance: TAPENTADOL HYDROCHLORIDE
     Dosage: 100 MG, 2X/DAY
     Dates: start: 20220907

REACTIONS (2)
  - COVID-19 [Recovered/Resolved]
  - Disease recurrence [Recovered/Resolved]

NARRATIVE: CASE EVENT DATE: 20250217
